FAERS Safety Report 20093464 (Version 1)
Quarter: 2021Q4

REPORT INFORMATION
  Report Type: Spontaneous
  Country: US (occurrence: US)
  Receive Date: 20211121
  Receipt Date: 20211121
  Transmission Date: 20220303
  Serious: Yes (Other)
  Sender: FDA-Public Use
  Company Number: US-NOVARTISPH-NVSC2021US263066

PATIENT
  Age: 51 Year
  Sex: Female

DRUGS (2)
  1. RANITIDINE [Suspect]
     Active Substance: RANITIDINE
     Indication: Colitis
     Dosage: 300 MG, QD
     Route: 065
     Dates: start: 200006, end: 201909
  2. RANITIDINE [Suspect]
     Active Substance: RANITIDINE
     Indication: Colitis
     Dosage: 300 MG, QD
     Route: 065
     Dates: start: 200006, end: 201909

REACTIONS (2)
  - Renal cancer stage I [Unknown]
  - Product use in unapproved indication [Unknown]

NARRATIVE: CASE EVENT DATE: 20150615
